FAERS Safety Report 12353208 (Version 2)
Quarter: 2017Q1

REPORT INFORMATION
  Report Type: Report from Study
  Country: US (occurrence: US)
  Receive Date: 20160510
  Receipt Date: 20170206
  Transmission Date: 20170428
  Serious: Yes (Hospitalization)
  Sender: FDA-Public Use
  Company Number: US-ACTELION-A-US2016-135850

PATIENT
  Age: 76 Year
  Sex: Female

DRUGS (3)
  1. SILDENAFIL. [Concomitant]
     Active Substance: SILDENAFIL
  2. ELIQUIS [Concomitant]
     Active Substance: APIXABAN
  3. TRACLEER [Suspect]
     Active Substance: BOSENTAN
     Indication: PULMONARY ARTERIAL HYPERTENSION
     Dosage: 125 MG, BID
     Route: 048
     Dates: start: 20130128

REACTIONS (4)
  - Dyspnoea [Unknown]
  - Atrial fibrillation [Unknown]
  - Pneumonia [Unknown]
  - Pulmonary embolism [Unknown]
